FAERS Safety Report 8317533 (Version 2)
Quarter: 2016Q1

REPORT INFORMATION
  Report Type: Spontaneous
  Country: JP (occurrence: JP)
  Receive Date: 20120102
  Receipt Date: 20160215
  Transmission Date: 20160526
  Serious: Yes (Other)
  Sender: FDA-Public Use
  Company Number: JP-BRISTOL-MYERS SQUIBB COMPANY-16313389

PATIENT
  Age: 26 Year
  Sex: Female

DRUGS (1)
  1. METFORMIN HYDROCHLORIDE. [Suspect]
     Active Substance: METFORMIN HYDROCHLORIDE
     Indication: INFERTILITY
     Dosage: UNK
     Route: 048

REACTIONS (6)
  - Maternal exposure during pregnancy [Unknown]
  - Uterine dilation and curettage [Unknown]
  - Ovarian hyperstimulation syndrome [Unknown]
  - Benign hydatidiform mole [Unknown]
  - Abortion induced [Unknown]
  - Off label use [Unknown]
